FAERS Safety Report 22636747 (Version 1)
Quarter: 2023Q2

REPORT INFORMATION
  Report Type: Spontaneous
  Country: US (occurrence: None)
  Receive Date: 20230621
  Receipt Date: 20230621
  Transmission Date: 20230722
  Serious: Yes (Hospitalization)
  Sender: FDA-Public Use
  Company Number: None

PATIENT
  Sex: Female

DRUGS (39)
  1. LENALIDOMIDE [Suspect]
     Active Substance: LENALIDOMIDE
     Indication: Plasma cell myeloma
     Dosage: FREQUENCY : DAILY;?OTHER ROUTE : PO 21DON, 7DOFF;?
     Route: 050
  2. ACYCLOVIR [Concomitant]
     Active Substance: ACYCLOVIR
  3. ALBUTEROL [Concomitant]
     Active Substance: ALBUTEROL
  4. AMITRIPTYLINE [Concomitant]
     Active Substance: AMITRIPTYLINE
  5. AMOXICILLIN [Concomitant]
     Active Substance: AMOXICILLIN
  6. ASPIRIN [Concomitant]
     Active Substance: ASPIRIN
  7. AZELASTINE [Concomitant]
     Active Substance: AZELASTINE
  8. CHLORHEXIDINE [Concomitant]
     Active Substance: CHLORHEXIDINE
  9. CITRALOPRAM [Concomitant]
  10. CLOBETASOL [Concomitant]
     Active Substance: CLOBETASOL
  11. CLONAZEPAM [Concomitant]
     Active Substance: CLONAZEPAM
  12. CYCLOBENZAPRINE [Concomitant]
  13. DEXAMETHASONE [Concomitant]
     Active Substance: DEXAMETHASONE
  14. BENADRYL [Concomitant]
     Active Substance: DIPHENHYDRAMINE HYDROCHLORIDE
  15. DOXYCYCLINE [Concomitant]
     Active Substance: DOXYCYCLINE
  16. EPINEPHRINE [Concomitant]
     Active Substance: EPINEPHRINE
  17. PEPCID [Concomitant]
     Active Substance: FAMOTIDINE
  18. FEXOFENADINE [Concomitant]
     Active Substance: FEXOFENADINE HYDROCHLORIDE
  19. FIBER [Concomitant]
  20. FLUTICASONE PROPIONATE [Concomitant]
     Active Substance: FLUTICASONE PROPIONATE
  21. LASIX [Concomitant]
     Active Substance: FUROSEMIDE
  22. GABAPENTIN [Concomitant]
  23. GAMMADARD [Concomitant]
  24. HYDROCODONE-ACETAMINOPHEN [Concomitant]
  25. HYDROXYZINE [Concomitant]
     Active Substance: HYDROXYZINE HYDROCHLORIDE
  26. LAMOTRIGINE [Concomitant]
     Active Substance: LAMOTRIGINE
  27. LURASIDONE [Concomitant]
  28. MOBIC [Concomitant]
     Active Substance: MELOXICAM
  29. MORPHINE SULFATE [Concomitant]
     Active Substance: MORPHINE SULFATE
  30. NEXIUM [Concomitant]
     Active Substance: ESOMEPRAZOLE MAGNESIUM
  31. NICOTINE POLACRILEX [Concomitant]
     Active Substance: NICOTINE
  32. NYSTATIN [Concomitant]
  33. ZOFRAN [Concomitant]
     Active Substance: ONDANSETRON HYDROCHLORIDE
  34. POTASSIUM CHLORIDE [Concomitant]
     Active Substance: POTASSIUM CHLORIDE
  35. SENNOSIDES-DOCUSATE [Concomitant]
  36. SODIUM CHLORIDE [Concomitant]
  37. STOOL SOFTENER/LAXATIVE [Concomitant]
  38. TRAZODONE [Concomitant]
  39. XYZAL [Concomitant]
     Active Substance: LEVOCETIRIZINE DIHYDROCHLORIDE

REACTIONS (1)
  - Fall [None]
